FAERS Safety Report 12704261 (Version 1)
Quarter: 2016Q3

REPORT INFORMATION
  Report Type: Spontaneous
  Country: MY (occurrence: MY)
  Receive Date: 20160831
  Receipt Date: 20160831
  Transmission Date: 20161109
  Serious: Yes (Life-Threatening)
  Sender: FDA-Public Use
  Company Number: ALCN2016MY005810

PATIENT
  Age: 35 Week
  Sex: Female

DRUGS (2)
  1. CYCLOMYDRIL [Suspect]
     Active Substance: CYCLOPENTOLATE HYDROCHLORIDE\PHENYLEPHRINE HYDROCHLORIDE
     Indication: MYDRIASIS
     Dosage: 3 GTT, ONCE/SINGLE
     Route: 047
     Dates: start: 20150625, end: 20150625
  2. ALCAINE [Suspect]
     Active Substance: PROPARACAINE HYDROCHLORIDE
     Indication: ANALGESIC THERAPY
     Dosage: 2 GTT, ONCE/SINGLE
     Route: 047
     Dates: start: 20150625, end: 20150625

REACTIONS (2)
  - Oxygen saturation decreased [Recovered/Resolved]
  - Hypopnoea [Recovered/Resolved]

NARRATIVE: CASE EVENT DATE: 20150625
